FAERS Safety Report 7352340-4 (Version None)
Quarter: 2011Q1

REPORT INFORMATION
  Report Type: 
  Country: None (occurrence: None)
  Receive Date: 20110315
  Receipt Date: 20110305
  Transmission Date: 20110831
  Serious: Yes (Hospitalization, Other)
  Sender: FDA-Public Use
  Company Number: US-ELI_LILLY_AND_COMPANY-US201009004083

PATIENT
  Sex: Female

DRUGS (9)
  1. MULTI-VITAMIN [Concomitant]
  2. FORTEO [Suspect]
     Dosage: 20 UG, DAILY (1/D)
  3. CALCIUM [Concomitant]
  4. ZOCOR [Concomitant]
  5. CARDIO [Concomitant]
  6. FORTEO [Suspect]
     Indication: OSTEOPOROSIS
     Dosage: 20 UG, DAILY (1/D)
     Dates: start: 20100601, end: 20110105
  7. FORTEO [Suspect]
     Dosage: 20 UG, DAILY (1/D)
  8. VITAMIN D [Concomitant]
  9. VITAMIN E [Concomitant]

REACTIONS (6)
  - HIP FRACTURE [None]
  - MEDICATION ERROR [None]
  - PRODUCTIVE COUGH [None]
  - ARTHRALGIA [None]
  - COUGH [None]
  - FALL [None]
